FAERS Safety Report 6302471-2 (Version None)
Quarter: 2009Q3

REPORT INFORMATION
  Report Type: 
  Country: None (occurrence: None)
  Receive Date: 20090810
  Receipt Date: 20090803
  Transmission Date: 20100115
  Serious: Yes (Other)
  Sender: FDA-Public Use
  Company Number: US-JNJFOC-20090801039

PATIENT
  Sex: Female
  Weight: 79.83 kg

DRUGS (8)
  1. TOPAMAX [Suspect]
     Indication: EPILEPSY
     Dosage: 25X4/TWICE/DAILY
     Route: 048
  2. KEPPRA [Concomitant]
     Indication: CONVULSION
  3. VALTREX [Concomitant]
     Indication: SEXUALLY TRANSMITTED DISEASE
  4. AVIANE-28 [Concomitant]
  5. VITAMIN B COMPLEX CAP [Concomitant]
  6. FISH OIL [Concomitant]
  7. VITAMIN AND MINERAL PRENATAL SUPPLEMENT W/ FOLIC ACID CAP [Concomitant]
  8. VITAMIN [Concomitant]

REACTIONS (7)
  - COMPLEX PARTIAL SEIZURES [None]
  - DRUG DOSE OMISSION [None]
  - FATIGUE [None]
  - FEELING ABNORMAL [None]
  - PARAESTHESIA [None]
  - PRODUCT QUALITY ISSUE [None]
  - WEIGHT DECREASED [None]
